FAERS Safety Report 7866919-4 (Version None)
Quarter: 2011Q4

REPORT INFORMATION
  Report Type: 
  Country: None (occurrence: None)
  Receive Date: 20111028
  Receipt Date: 20111026
  Transmission Date: 20120403
  Serious: Yes (Hospitalization)
  Sender: FDA-Public Use
  Company Number: DE-ROCHE-1007400

PATIENT
  Sex: Female
  Weight: 52 kg

DRUGS (2)
  1. OXALIPLATIN [Suspect]
     Indication: GASTRIC CANCER
     Route: 042
     Dates: start: 20111017, end: 20111017
  2. XELODA [Suspect]
     Indication: GASTRIC CANCER
     Route: 048
     Dates: start: 20111017, end: 20111023

REACTIONS (3)
  - VOMITING [None]
  - DIZZINESS [None]
  - FALL [None]
